FAERS Safety Report 23743352 (Version 5)
Quarter: 2025Q3

REPORT INFORMATION
  Report Type: Report from Study
  Country: US (occurrence: US)
  Receive Date: 20240415
  Receipt Date: 20250912
  Transmission Date: 20251020
  Serious: Yes (Death, Life-Threatening, Hospitalization, Other)
  Sender: JOHNSON AND JOHNSON
  Company Number: US-JNJFOC-20240415685

PATIENT
  Age: 79 Year
  Sex: Male
  Weight: 62.8 kg

DRUGS (1)
  1. CILTACABTAGENE AUTOLEUCEL [Suspect]
     Active Substance: CILTACABTAGENE AUTOLEUCEL
     Indication: Plasma cell myeloma
     Route: 042
     Dates: start: 20231018, end: 20231018

REACTIONS (6)
  - Infection [Fatal]
  - Immune-mediated enterocolitis [Recovering/Resolving]
  - Cytokine release syndrome [Recovered/Resolved]
  - Immune effector cell-associated neurotoxicity syndrome [Recovered/Resolved]
  - Clostridium difficile colitis [Unknown]
  - Parkinsonism [Unknown]

NARRATIVE: CASE EVENT DATE: 20231026
